FAERS Safety Report 13157366 (Version 1)
Quarter: 2017Q1

REPORT INFORMATION
  Report Type: Spontaneous
  Country: IT (occurrence: IT)
  Receive Date: 20170127
  Receipt Date: 20170127
  Transmission Date: 20170428
  Serious: Yes (Other)
  Sender: FDA-Public Use
  Company Number: IT-SHIRE-IT201615349

PATIENT
  Age: 81 Year
  Sex: Female

DRUGS (9)
  1. CLEXANE [Suspect]
     Active Substance: ENOXAPARIN SODIUM
     Indication: DEEP VEIN THROMBOSIS
     Dosage: 4000 IU, 1X/DAY:QD
     Route: 058
     Dates: start: 20160907, end: 20161010
  2. PIPERACILLINA E TAZOBACTAM KABI [Concomitant]
     Active Substance: PIPERACILLIN SODIUM\TAZOBACTAM SODIUM
     Indication: PERITONITIS
     Dosage: 13.5 G, UNKNOWN
     Route: 042
     Dates: start: 20160907
  3. OLANZAPINA [Concomitant]
     Active Substance: OLANZAPINE
     Indication: MAJOR DEPRESSION
     Dosage: 10 MG, UNKNOWN
     Route: 048
     Dates: start: 20160912
  4. VAGILEN [Suspect]
     Active Substance: METRONIDAZOLE
     Indication: DIVERTICULITIS
     Dosage: 1500 MG, 1X/DAY:QD
     Route: 048
     Dates: start: 20160930, end: 20161011
  5. ANAFRANIL [Concomitant]
     Active Substance: CLOMIPRAMINE HYDROCHLORIDE
     Indication: MAJOR DEPRESSION
     Dosage: 25 MG, UNKNOWN
     Route: 048
     Dates: start: 20160912
  6. SMOFKABIVEN [Concomitant]
     Active Substance: UNSPECIFIED INGREDIENT
     Indication: NUTRITIONAL SUPPLEMENTATION
     Dosage: 1 DF, UNKNOWN
     Route: 051
     Dates: start: 20160908
  7. 476 (MESALAZINE/MESALAMINE) [Suspect]
     Active Substance: MESALAMINE
     Indication: DIVERTICULITIS
     Dosage: 2400 MG, 1X/DAY:QD
     Route: 048
     Dates: start: 20160913, end: 20161011
  8. OMEPRAZOL TEVA                     /00661201/ [Concomitant]
     Indication: ADENOCARCINOMA GASTRIC
     Dosage: 40 MG, UNKNOWN
     Route: 048
     Dates: start: 20160915
  9. ATENOLOL. [Concomitant]
     Active Substance: ATENOLOL
     Indication: HYPERTENSION
     Dosage: 100 MG, UNKNOWN
     Route: 048
     Dates: start: 20160912

REACTIONS (3)
  - Thrombocytopenia [Unknown]
  - Pancytopenia [Unknown]
  - Product use issue [Recovered/Resolved]

NARRATIVE: CASE EVENT DATE: 20160913
